FAERS Safety Report 8202558-3 (Version None)
Quarter: 2012Q1

REPORT INFORMATION
  Report Type: 
  Country: None (occurrence: None)
  Receive Date: 20120312
  Receipt Date: 20120305
  Transmission Date: 20120608
  Serious: Yes (Other)
  Sender: FDA-Public Use
  Company Number: PHHY2012ES019043

PATIENT
  Age: 75 Year
  Sex: Male

DRUGS (3)
  1. COTRIM [Suspect]
  2. LINEZOLID [Concomitant]
  3. CEFTRIAXON [Concomitant]

REACTIONS (13)
  - APLASIA [None]
  - CONFUSIONAL STATE [None]
  - PRURITUS [None]
  - HEPATITIS CHOLESTATIC [None]
  - DRUG RASH WITH EOSINOPHILIA AND SYSTEMIC SYMPTOMS [None]
  - LIVER INJURY [None]
  - EOSINOPHILIA [None]
  - VOMITING [None]
  - TOXIC SKIN ERUPTION [None]
  - NAUSEA [None]
  - RASH [None]
  - DIZZINESS [None]
  - PANCYTOPENIA [None]
